FAERS Safety Report 22372431 (Version 1)
Quarter: 2023Q2

REPORT INFORMATION
  Report Type: Spontaneous
  Country: FR (occurrence: FR)
  Receive Date: 20230526
  Receipt Date: 20230526
  Transmission Date: 20230722
  Serious: Yes (Hospitalization)
  Sender: FDA-Public Use
  Company Number: FR-MYLANLABS-2023M1054851

PATIENT
  Age: 73 Year
  Sex: Male

DRUGS (2)
  1. CLOXACILLIN [Suspect]
     Active Substance: CLOXACILLIN
     Indication: Staphylococcal bacteraemia
     Dosage: UNK, RECEIVED FOR 5 DAYS
     Route: 065
  2. LEVOFLOXACIN [Suspect]
     Active Substance: LEVOFLOXACIN
     Indication: Staphylococcal bacteraemia
     Dosage: UNK, RECEIVED FOR 24H
     Route: 065

REACTIONS (2)
  - Drug reaction with eosinophilia and systemic symptoms [Recovering/Resolving]
  - Duodenal stenosis [Recovering/Resolving]
